FAERS Safety Report 25272421 (Version 1)
Quarter: 2025Q2

REPORT INFORMATION
  Report Type: Report from Study
  Country: US (occurrence: US)
  Receive Date: 20250506
  Receipt Date: 20250506
  Transmission Date: 20250717
  Serious: No
  Sender: SUNOVION
  Company Number: US-SUMITOMO PHARMA SWITZERLAND GMBH-2025SPA004071

PATIENT

DRUGS (9)
  1. ORGOVYX [Suspect]
     Active Substance: RELUGOLIX
     Indication: Prostate cancer
     Dosage: 120 MG, QD
     Route: 048
     Dates: start: 20250404
  2. ARNUITY ELLIPTA [Concomitant]
     Active Substance: FLUTICASONE FUROATE
     Route: 065
  3. ASPIRIN [Concomitant]
     Active Substance: ASPIRIN
     Route: 065
  4. ATORVASTATIN [Concomitant]
     Active Substance: ATORVASTATIN
     Route: 065
  5. LORATADINE [Concomitant]
     Active Substance: LORATADINE
     Route: 065
  6. METFORMIN [Concomitant]
     Active Substance: METFORMIN HYDROCHLORIDE
     Route: 065
  7. VITAMINS [Concomitant]
     Active Substance: VITAMINS
     Route: 065
  8. FISH OIL [Concomitant]
     Active Substance: FISH OIL
     Route: 065
  9. ZINC [Concomitant]
     Active Substance: ZINC
     Route: 065

REACTIONS (3)
  - Fatigue [Unknown]
  - Hot flush [Unknown]
  - Incorrect dose administered [Unknown]
